FAERS Safety Report 4821710-8 (Version None)
Quarter: 2005Q4

REPORT INFORMATION
  Report Type: 
  Country: None (occurrence: None)
  Receive Date: 20051104
  Receipt Date: 20051104
  Transmission Date: 20060501
  Serious: Yes (Hospitalization)
  Sender: FDA-Public Use
  Company Number: None

PATIENT
  Sex: Male
  Weight: 91.6266 kg

DRUGS (2)
  1. IRINOTECAN HCL [Suspect]
     Indication: SMALL CELL LUNG CANCER EXTENSIVE STAGE
     Dosage: 150MG/M2 Q5W IV DRIP
     Route: 041
     Dates: start: 20050920, end: 20050920
  2. OXALIPLATIN [Suspect]
     Indication: SMALL CELL LUNG CANCER EXTENSIVE STAGE
     Dosage: 85MG/M2 Q5W IV DRIP
     Route: 041
     Dates: start: 20050920, end: 20050920

REACTIONS (5)
  - DEHYDRATION [None]
  - DIARRHOEA [None]
  - LABORATORY TEST ABNORMAL [None]
  - NAUSEA [None]
  - VOMITING [None]
